FAERS Safety Report 18649520 (Version 15)
Quarter: 2021Q3

REPORT INFORMATION
  Report Type: Spontaneous
  Country: US (occurrence: US)
  Receive Date: 20201222
  Receipt Date: 20210729
  Transmission Date: 20211014
  Serious: No
  Sender: FDA-Public Use
  Company Number: US-PHARMING-PHAUS2020000476

PATIENT

DRUGS (10)
  1. RUCONEST [Suspect]
     Active Substance: HUMAN C1-ESTERASE INHIBITOR
     Dosage: 4200 IU, ONCE WEEKLY
     Route: 042
     Dates: start: 20201111
  2. RUCONEST [Suspect]
     Active Substance: HUMAN C1-ESTERASE INHIBITOR
     Dosage: 4200 IU, DAY 2 OF CYCLE AND WEEKLY
     Route: 042
     Dates: start: 20201111
  3. RUCONEST [Suspect]
     Active Substance: HUMAN C1-ESTERASE INHIBITOR
     Indication: HEREDITARY ANGIOEDEMA
     Dosage: 4200 IU, BEFORE EVERY IVIG INFUSION AT DAY TWO OF THE CYCLE EVERY THREE WEEKS, ONCE WEEKLY
     Route: 042
     Dates: start: 20201111
  4. RUCONEST [Suspect]
     Active Substance: HUMAN C1-ESTERASE INHIBITOR
     Dosage: 4200 IU, BEFORE EVERY IVIG INFUSION AT DAY TWO OF THE CYCLE EVERY THREE WEEKS, ONCE WEEKLY
     Route: 042
     Dates: start: 20201111
  5. RUCONEST [Suspect]
     Active Substance: HUMAN C1-ESTERASE INHIBITOR
     Dosage: 4200 IU, ONCE WEEKLY
     Route: 042
     Dates: start: 20201111
  6. RUCONEST [Suspect]
     Active Substance: HUMAN C1-ESTERASE INHIBITOR
     Indication: HEREDITARY ANGIOEDEMA
     Dosage: 4200 IU, ONCE WEEKLY
     Route: 042
     Dates: start: 20201111
  7. RUCONEST [Suspect]
     Active Substance: HUMAN C1-ESTERASE INHIBITOR
     Dosage: 4200 IU, BEFORE EVERY IVIG INFUSION AT DAY TWO OF THE CYCLE EVERY THREE WEEKS, ONCE WEEKLY
     Route: 042
     Dates: start: 20201111
  8. RUCONEST [Suspect]
     Active Substance: HUMAN C1-ESTERASE INHIBITOR
     Indication: DERMATITIS ATOPIC
     Dosage: 4200 IU, EVERY THREE WEEKS
     Route: 042
     Dates: start: 20201111
  9. RUCONEST [Suspect]
     Active Substance: HUMAN C1-ESTERASE INHIBITOR
     Dosage: 4200 IU, EVERY THREE WEEKS
     Route: 042
     Dates: start: 20201111
  10. RUCONEST [Suspect]
     Active Substance: HUMAN C1-ESTERASE INHIBITOR
     Indication: MAST CELL ACTIVATION SYNDROME
     Dosage: 4200 IU, BEFORE EVERY IVIG INFUSION AT DAY TWO OF THE CYCLE EVERY THREE WEEKS, ONCE WEEKLY
     Route: 042
     Dates: start: 20201111

REACTIONS (4)
  - Product availability issue [Unknown]
  - Product dose omission issue [Unknown]
  - Intentional product use issue [Unknown]
  - Product use in unapproved indication [Unknown]

NARRATIVE: CASE EVENT DATE: 20201218
